FAERS Safety Report 15587496 (Version 1)
Quarter: 2018Q4

REPORT INFORMATION
  Report Type: Spontaneous
  Country: US (occurrence: US)
  Receive Date: 20181105
  Receipt Date: 20181105
  Transmission Date: 20190205
  Serious: Yes (Other)
  Sender: FDA-Public Use
  Company Number: US-TARO PHARMACEUTICALS USA.,INC-2018SUN00567

PATIENT
  Age: 22 Year
  Sex: Male

DRUGS (2)
  1. MOMETASONE [Suspect]
     Active Substance: MOMETASONE
     Indication: DERMATITIS ATOPIC
     Dosage: UNK
     Route: 061
  2. TRIAMCINOLONE [Suspect]
     Active Substance: TRIAMCINOLONE
     Indication: DERMATITIS ATOPIC
     Dosage: UNK
     Route: 061

REACTIONS (4)
  - Eczema [Recovering/Resolving]
  - Skin plaque [Recovering/Resolving]
  - Steroid withdrawal syndrome [Recovering/Resolving]
  - Erythema [Recovering/Resolving]
